FAERS Safety Report 14608168 (Version 1)
Quarter: 2018Q1

REPORT INFORMATION
  Report Type: Spontaneous
  Country: JP (occurrence: JP)
  Receive Date: 20180307
  Receipt Date: 20180307
  Transmission Date: 20180509
  Serious: Yes (Hospitalization)
  Sender: FDA-Public Use
  Company Number: JP-ASTRAZENECA-2018SE28426

PATIENT
  Age: 33 Year
  Sex: Male

DRUGS (4)
  1. SEROQUEL [Suspect]
     Active Substance: QUETIAPINE FUMARATE
     Indication: SCHIZOPHRENIA
     Route: 048
     Dates: start: 20171201, end: 20171201
  2. HALCION [Concomitant]
     Active Substance: TRIAZOLAM
  3. PURSENNID [Concomitant]
     Active Substance: SENNOSIDES A AND B
  4. HIRNAMIN [Concomitant]
     Active Substance: PHENOTHIAZINE

REACTIONS (2)
  - Depressed level of consciousness [Recovered/Resolved]
  - Tardive dyskinesia [Recovered/Resolved]

NARRATIVE: CASE EVENT DATE: 20171201
